FAERS Safety Report 9431437 (Version 2)
Quarter: 2013Q3

REPORT INFORMATION
  Report Type: Report from Study
  Country: US (occurrence: US)
  Receive Date: 20130730
  Receipt Date: 20130731
  Transmission Date: 20140515
  Serious: Yes (Congenital Anomaly, Other)
  Sender: FDA-Public Use
  Company Number: US-UCBSA-8027954

PATIENT
  Sex: Female
  Weight: 1.1 kg

DRUGS (6)
  1. KEPPRA [Suspect]
     Indication: CONVULSION
     Dosage: DOSE FREQ.: DAILY
     Route: 064
  2. NIFEDIPINE [Suspect]
     Indication: TOCOLYSIS
  3. BETAMETHASONE [Suspect]
     Route: 064
  4. MAGNESIUM SULPHATE [Suspect]
     Indication: TOCOLYSIS
  5. MARIJUANA [Suspect]
     Route: 064
  6. MULTIVITAMIN [Concomitant]
     Route: 064

REACTIONS (4)
  - Ventricular septal defect [Recovered/Resolved]
  - Congenital anomaly [Recovered/Resolved with Sequelae]
  - Premature baby [Unknown]
  - Foetal exposure during pregnancy [Recovered/Resolved]
